FAERS Safety Report 8561192-6 (Version None)
Quarter: 2012Q3

REPORT INFORMATION
  Report Type: 
  Country: None (occurrence: None)
  Receive Date: 20120802
  Receipt Date: 20120724
  Transmission Date: 20120928
  Serious: Yes (Other)
  Sender: FDA-Public Use
  Company Number: US-ASTRAZENECA-2012SE52203

PATIENT
  Age: 81 Year
  Sex: Female
  Weight: 70.8 kg

DRUGS (16)
  1. NORVASC [Concomitant]
     Indication: ARRHYTHMIA
     Route: 048
  2. SOTALOL HYDROCHLORIDE [Suspect]
  3. LIPITOR [Concomitant]
     Indication: BLOOD CHOLESTEROL INCREASED
     Route: 048
  4. VITAMIN D [Concomitant]
     Indication: VITAMIN SUPPLEMENTATION
     Route: 048
  5. STOOL SOFTENER [Concomitant]
     Indication: CONSTIPATION PROPHYLAXIS
     Route: 048
  6. PLAVIX [Concomitant]
     Indication: COAGULOPATHY
     Route: 048
  7. LASIX [Concomitant]
     Indication: FLUID RETENTION
     Route: 048
  8. NEXIUM [Suspect]
     Indication: GASTROOESOPHAGEAL REFLUX DISEASE
     Route: 048
     Dates: start: 20020101, end: 20120723
  9. CELEXA [Concomitant]
     Indication: NERVOUSNESS
     Route: 048
  10. KLONOPIN [Concomitant]
     Indication: NERVOUSNESS
     Route: 048
  11. ANTIVERT [Concomitant]
     Indication: VERTIGO
     Route: 048
  12. FISH OIL [Concomitant]
     Indication: SUPPLEMENTATION THERAPY
     Route: 048
  13. POTASSIUM CHLORIDE [Concomitant]
     Indication: BLOOD POTASSIUM ABNORMAL
     Route: 048
  14. ZETIA [Concomitant]
     Indication: BLOOD CHOLESTEROL INCREASED
     Route: 048
  15. ASPIRIN [Concomitant]
     Indication: CARDIAC DISORDER
     Route: 048
  16. COREG [Concomitant]
     Indication: CARDIAC DISORDER
     Route: 048

REACTIONS (8)
  - VERTIGO [None]
  - INFLAMMATION [None]
  - SKIN PAPILLOMA [None]
  - OSTEOPOROSIS [None]
  - OESOPHAGEAL IRRITATION [None]
  - CARDIAC FAILURE CONGESTIVE [None]
  - BACK PAIN [None]
  - ARTHRITIS [None]
